FAERS Safety Report 16156211 (Version 2)
Quarter: 2019Q2

REPORT INFORMATION
  Report Type: Spontaneous
  Country: US (occurrence: US)
  Receive Date: 20190404
  Receipt Date: 20190528
  Transmission Date: 20190711
  Serious: Yes (Death, Other)
  Sender: FDA-Public Use
  Company Number: US-ASTRAZENECA-2019SE50490

PATIENT
  Sex: Female
  Weight: 77.8 kg

DRUGS (2)
  1. PLAVIX [Suspect]
     Active Substance: CLOPIDOGREL BISULFATE
     Indication: TRANSCATHETER AORTIC VALVE IMPLANTATION
     Route: 065
     Dates: start: 20190308, end: 20190311
  2. LOKELMA [Suspect]
     Active Substance: SODIUM ZIRCONIUM CYCLOSILICATE
     Indication: HYPERKALAEMIA
     Dosage: 10.0G ONCE/SINGLE ADMINISTRATION
     Route: 048
     Dates: start: 20190308, end: 20190308

REACTIONS (13)
  - Respiratory distress [Unknown]
  - Haematochezia [Unknown]
  - Atrial fibrillation [Fatal]
  - Gastrointestinal ulcer [Unknown]
  - Confusional state [Unknown]
  - Anaemia [Fatal]
  - Metabolic acidosis [Fatal]
  - Acute kidney injury [Fatal]
  - Cardiac failure congestive [Unknown]
  - Lethargy [Unknown]
  - Sepsis [Fatal]
  - Gastrointestinal haemorrhage [Unknown]
  - Pulmonary oedema [Unknown]
